FAERS Safety Report 11316488 (Version 2)
Quarter: 2015Q3

REPORT INFORMATION
  Report Type: Spontaneous
  Country: KR (occurrence: KR)
  Receive Date: 20150728
  Receipt Date: 20150826
  Transmission Date: 20151125
  Serious: Yes (Hospitalization)
  Sender: FDA-Public Use
  Company Number: KR-ACTELION-A-CH2015-121207

PATIENT
  Age: 76 Year
  Sex: Female
  Weight: 53.6 kg

DRUGS (16)
  1. LIPITOR [Concomitant]
     Active Substance: ATORVASTATIN CALCIUM
     Indication: CARDIAC FAILURE CONGESTIVE
     Dosage: 10 MG, UNK
     Dates: start: 20150303
  2. MUCOSTA [Concomitant]
     Active Substance: REBAMIPIDE
     Indication: CHRONIC GASTRITIS
     Dosage: 100 MG, UNK
     Dates: start: 20150304
  3. NORVASC [Concomitant]
     Active Substance: AMLODIPINE BESYLATE
     Indication: HYPERTENSION
     Dosage: 5 MG, UNK
     Dates: start: 20150303, end: 20150530
  4. QUESTRAN [Concomitant]
     Active Substance: CHOLESTYRAMINE
     Indication: HYPERCHOLESTEROLAEMIA
     Dosage: UNK
     Dates: start: 20150709, end: 20150710
  5. LANSTON [Concomitant]
     Active Substance: LANSOPRAZOLE
     Indication: CHRONIC GASTRITIS
     Dosage: 15 MG, UNK
     Dates: start: 20150711, end: 20150711
  6. ALDACTONE [Concomitant]
     Active Substance: SPIRONOLACTONE
     Indication: CARDIAC FAILURE CHRONIC
     Dosage: 25 MG, UNK
     Route: 048
     Dates: start: 20150423
  7. DIOVAN [Concomitant]
     Active Substance: VALSARTAN
     Indication: HYPERTENSION
     Dosage: 80 MG, UNK
     Dates: start: 20150303
  8. DURICEF [Concomitant]
     Active Substance: CEFADROXIL
     Indication: RHEUMATOID ARTHRITIS
     Dosage: 500 MG, UNK
     Dates: start: 20150521, end: 20150625
  9. TRACLEER [Suspect]
     Active Substance: BOSENTAN
     Dosage: UNK MG, UNK
     Route: 048
     Dates: start: 20150723
  10. RELAFEN [Concomitant]
     Active Substance: NABUMETONE
     Indication: RHEUMATOID ARTHRITIS
     Dosage: 50 MG, UNK
     Dates: start: 20150304
  11. TORSEM [Concomitant]
     Indication: CARDIAC FAILURE CONGESTIVE
     Dosage: 5 MG, UNK
     Dates: start: 20150531
  12. TORSEM [Concomitant]
     Dosage: 2.5 MG, UNK
     Dates: start: 20150303, end: 20150530
  13. TRACLEER [Suspect]
     Active Substance: BOSENTAN
     Indication: PULMONARY HYPERTENSION
     Dosage: 62.5 MG, BID
     Route: 048
     Dates: start: 20150423, end: 20150709
  14. ARAVA [Concomitant]
     Active Substance: LEFLUNOMIDE
     Indication: RHEUMATOID ARTHRITIS
     Dosage: 10 MG, UNK
     Dates: start: 20150423, end: 20150529
  15. METHYLON [Concomitant]
     Active Substance: METHYLPREDNISOLONE
     Indication: RHEUMATOID ARTHRITIS
     Dosage: 4 MG, UNK
     Dates: start: 20150423
  16. CONCOR [Concomitant]
     Active Substance: BISOPROLOL FUMARATE
     Indication: CARDIAC FAILURE CONGESTIVE
     Dosage: 2.5 MG, UNK
     Dates: start: 20150423

REACTIONS (8)
  - Asthenia [Recovered/Resolved]
  - Joint swelling [Recovered/Resolved]
  - Pain [Recovered/Resolved]
  - Alanine aminotransferase increased [Recovered/Resolved]
  - Aspartate aminotransferase increased [Recovered/Resolved]
  - Arthralgia [Recovered/Resolved]
  - Blood alkaline phosphatase increased [Recovered/Resolved]
  - Liver function test abnormal [Recovered/Resolved]

NARRATIVE: CASE EVENT DATE: 20150701
